FAERS Safety Report 17748658 (Version 2)
Quarter: 2020Q2

REPORT INFORMATION
  Report Type: Spontaneous
  Country: US (occurrence: US)
  Receive Date: 20200505
  Receipt Date: 20200528
  Transmission Date: 20200714
  Serious: Yes (Death, Other)
  Sender: FDA-Public Use
  Company Number: US-GILEAD-2020-0463576

PATIENT
  Age: 60 Year
  Sex: Female
  Weight: 74.38 kg

DRUGS (10)
  1. NOVOLIN 70/30 [Concomitant]
     Active Substance: INSULIN HUMAN
  2. METOPROLOL SUCCINATE. [Concomitant]
     Active Substance: METOPROLOL SUCCINATE
  3. LITHIUM. [Concomitant]
     Active Substance: LITHIUM
  4. OXYCONTIN [Concomitant]
     Active Substance: OXYCODONE HYDROCHLORIDE
  5. EPCLUSA [Suspect]
     Active Substance: SOFOSBUVIR\VELPATASVIR
     Indication: CHRONIC HEPATITIS C
     Dosage: 1 DOSAGE FORM
     Route: 065
     Dates: start: 20200327
  6. ONDANSETRON [Concomitant]
     Active Substance: ONDANSETRON
  7. LYRICA [Concomitant]
     Active Substance: PREGABALIN
  8. BASAGLAR [Concomitant]
     Active Substance: INSULIN GLARGINE
  9. OXYCODONE HYDROCHLORIDE. [Concomitant]
     Active Substance: OXYCODONE HYDROCHLORIDE
  10. CREON [Concomitant]
     Active Substance: PANCRELIPASE AMYLASE\PANCRELIPASE LIPASE\PANCRELIPASE PROTEASE

REACTIONS (1)
  - Cardiac arrest [Fatal]
